FAERS Safety Report 14546800 (Version 2)
Quarter: 2018Q1

REPORT INFORMATION
  Report Type: Spontaneous
  Country: DE (occurrence: DE)
  Receive Date: 20180219
  Receipt Date: 20180226
  Transmission Date: 20180509
  Serious: Yes (Life-Threatening, Hospitalization)
  Sender: FDA-Public Use
  Company Number: DE-ROCHE-2069914

PATIENT
  Sex: Male
  Weight: 85 kg

DRUGS (1)
  1. RITUXIMAB. [Suspect]
     Active Substance: RITUXIMAB
     Indication: IMMUNE TOLERANCE INDUCTION
     Route: 065

REACTIONS (6)
  - Respiratory failure [Unknown]
  - Off label use [Unknown]
  - Device breakage [Unknown]
  - Haemorrhage [Unknown]
  - Haematoma [Unknown]
  - Intentional product use issue [Unknown]
